FAERS Safety Report 7741922-3 (Version None)
Quarter: 2011Q3

REPORT INFORMATION
  Report Type: 
  Country: None (occurrence: None)
  Receive Date: 20110912
  Receipt Date: 20110830
  Transmission Date: 20111222
  Serious: Yes (Other)
  Sender: FDA-Public Use
  Company Number: US-JNJFOC-20100707913

PATIENT
  Sex: Female
  Weight: 51.26 kg

DRUGS (67)
  1. DURAGESIC-100 [Suspect]
     Route: 062
     Dates: start: 20100803
  2. DURAGESIC-100 [Suspect]
     Indication: PAIN IN EXTREMITY
     Route: 062
     Dates: start: 20090101, end: 20100101
  3. DURAGESIC-100 [Suspect]
     Route: 062
     Dates: start: 20100803
  4. DURAGESIC-100 [Suspect]
     Indication: BACK PAIN
     Route: 062
     Dates: start: 20100707
  5. DURAGESIC-100 [Suspect]
     Dosage: 50UG/HR+100UG/HR
     Route: 062
     Dates: start: 20100101
  6. DURAGESIC-100 [Suspect]
     Route: 062
     Dates: start: 20100610
  7. DURAGESIC-100 [Suspect]
     Route: 062
     Dates: start: 20100803
  8. DURAGESIC-100 [Suspect]
     Route: 062
     Dates: start: 20090101, end: 20100101
  9. DURAGESIC-100 [Suspect]
     Route: 062
     Dates: start: 20100831
  10. FENTANYL-100 [Suspect]
     Route: 062
     Dates: start: 20100101, end: 20100101
  11. DURAGESIC-100 [Suspect]
     Route: 062
     Dates: end: 20090101
  12. DURAGESIC-100 [Suspect]
     Route: 062
     Dates: start: 20100101
  13. DURAGESIC-100 [Suspect]
     Dosage: 50UG/HR+100UG/HR
     Route: 062
     Dates: start: 20100101
  14. DURAGESIC-100 [Suspect]
     Route: 062
     Dates: start: 20100707
  15. DURAGESIC-100 [Suspect]
     Indication: CARPAL TUNNEL SYNDROME
     Route: 062
     Dates: start: 20100101
  16. DURAGESIC-100 [Suspect]
     Dosage: 50UG/HR+100UG/HR
     Route: 062
     Dates: start: 20100101
  17. FENTANYL-100 [Suspect]
     Indication: PAIN IN EXTREMITY
     Route: 062
  18. TEMAZEPAM [Concomitant]
     Dosage: AT BEDTIME
     Route: 065
     Dates: start: 20100831
  19. DIAZEPAM [Concomitant]
     Dosage: 28 DAYS
     Route: 065
     Dates: start: 20100610
  20. SANDOZ FENTANYL TRANSDERMAL SYSTEM [Suspect]
     Indication: PAIN
     Route: 062
     Dates: start: 20010101, end: 20010101
  21. DURAGESIC-100 [Suspect]
     Route: 062
     Dates: start: 20100707
  22. DURAGESIC-100 [Suspect]
     Route: 062
     Dates: start: 20100831
  23. DURAGESIC-100 [Suspect]
     Route: 062
     Dates: start: 20100101
  24. DURAGESIC-100 [Suspect]
     Route: 062
     Dates: start: 20100101
  25. FENTANYL-100 [Suspect]
     Route: 062
     Dates: start: 20100504
  26. FENTANYL-100 [Suspect]
     Route: 062
  27. FENTANYL-100 [Suspect]
     Indication: PAIN
     Route: 062
     Dates: start: 20100101, end: 20100101
  28. TEMAZEPAM [Concomitant]
     Route: 065
     Dates: start: 20100707
  29. DIAZEPAM [Concomitant]
     Dosage: 28 DAYS
     Route: 065
     Dates: start: 20100803
  30. DURAGESIC-100 [Suspect]
     Route: 062
     Dates: start: 20100101
  31. DURAGESIC-100 [Suspect]
     Route: 062
     Dates: start: 20090101, end: 20100101
  32. DURAGESIC-100 [Suspect]
     Route: 062
     Dates: start: 20100831
  33. DURAGESIC-100 [Suspect]
     Route: 062
     Dates: start: 20100610
  34. DURAGESIC-100 [Suspect]
     Route: 062
     Dates: start: 20100707
  35. FENTANYL-100 [Suspect]
     Route: 062
     Dates: start: 20100602
  36. NEXIUM [Concomitant]
     Indication: GASTROOESOPHAGEAL REFLUX DISEASE
     Route: 048
     Dates: start: 20010101
  37. TEMAZEPAM [Concomitant]
     Route: 065
     Dates: start: 20100602
  38. DIAZEPAM [Concomitant]
     Dosage: 28 DAYS
     Route: 065
     Dates: start: 20100602
  39. DIAZEPAM [Concomitant]
     Dosage: 28 DAYS
     Route: 065
     Dates: start: 20100831
  40. DURAGESIC-100 [Suspect]
     Dosage: 50UG/HR+100UG/HR
     Route: 062
     Dates: start: 20100101
  41. DURAGESIC-100 [Suspect]
     Route: 062
     Dates: start: 20100831
  42. DURAGESIC-100 [Suspect]
     Route: 062
     Dates: start: 20100610
  43. DURAGESIC-100 [Suspect]
     Route: 062
     Dates: end: 20090101
  44. NEURONTIN [Concomitant]
     Indication: ARTHRALGIA
     Route: 048
     Dates: start: 19990101
  45. TEMAZEPAM [Concomitant]
     Route: 065
     Dates: start: 20100610
  46. DIAZEPAM [Concomitant]
     Dosage: 28 DAYS
     Route: 065
     Dates: start: 20100504
  47. DIAZEPAM [Concomitant]
     Dosage: 28 DAYS
     Route: 065
     Dates: start: 20100831
  48. DURAGESIC-100 [Suspect]
     Indication: ARTHRALGIA
     Route: 062
     Dates: start: 20100610
  49. DURAGESIC-100 [Suspect]
     Route: 062
     Dates: start: 20100610
  50. DURAGESIC-100 [Suspect]
     Route: 062
     Dates: start: 20100803
  51. DURAGESIC-100 [Suspect]
     Route: 062
     Dates: start: 20100707
  52. FENTANYL-100 [Suspect]
     Route: 062
     Dates: start: 20100602
  53. FENTANYL-100 [Suspect]
     Indication: BACK PAIN
     Route: 062
     Dates: start: 20100504
  54. FENTANYL-100 [Suspect]
     Route: 062
     Dates: start: 20100504
  55. TEMAZEPAM [Concomitant]
     Route: 065
     Dates: start: 20100504
  56. TEMAZEPAM [Concomitant]
     Route: 065
     Dates: start: 20100709
  57. DIAZEPAM [Concomitant]
     Dosage: 28 DAYS
     Route: 065
     Dates: start: 20100707
  58. DURAGESIC-100 [Suspect]
     Indication: PAIN
     Route: 062
     Dates: start: 20090101, end: 20100101
  59. FENTANYL-100 [Suspect]
     Route: 062
     Dates: start: 20100101, end: 20100101
  60. FENTANYL-100 [Suspect]
     Route: 062
     Dates: start: 20100602
  61. TEMAZEPAM [Concomitant]
     Route: 065
     Dates: start: 20100803
  62. DURAGESIC-100 [Suspect]
     Route: 062
     Dates: start: 20090101, end: 20100101
  63. DURAGESIC-100 [Suspect]
     Route: 062
     Dates: start: 20100803
  64. DURAGESIC-100 [Suspect]
     Route: 062
     Dates: start: 20100831
  65. DURAGESIC-100 [Suspect]
     Dosage: 50UG/HR+100UG/HR
     Route: 062
     Dates: start: 20100101
  66. FENTANYL-100 [Suspect]
     Route: 062
  67. UNKNOWN MEDICATION [Concomitant]
     Indication: PRODUCT USED FOR UNKNOWN INDICATION
     Route: 065

REACTIONS (16)
  - KYPHOSCOLIOSIS [None]
  - RESTLESSNESS [None]
  - ARTHROSCOPY [None]
  - MALAISE [None]
  - MYALGIA [None]
  - PAIN [None]
  - OSTEOARTHRITIS [None]
  - SPLINTER [None]
  - THERAPEUTIC PROCEDURE [None]
  - FEELING JITTERY [None]
  - COLONOSCOPY [None]
  - IRRITABILITY [None]
  - BACK PAIN [None]
  - HYPERSENSITIVITY [None]
  - SUTURE INSERTION [None]
  - DRUG INEFFECTIVE [None]
